FAERS Safety Report 6681130-0 (Version None)
Quarter: 2010Q2

REPORT INFORMATION
  Report Type: 
  Country: None (occurrence: None)
  Receive Date: 20100412
  Receipt Date: 20070209
  Transmission Date: 20101027
  Serious: Yes (Hospitalization)
  Sender: FDA-Public Use
  Company Number: 2009-3752

PATIENT
  Sex: Male

DRUGS (1)
  1. APO-GO AMPOULES (APO-GO) [Suspect]
     Indication: PARKINSON'S DISEASE
     Dosage: 8 MG, 1 IN 1 HR, SUBCUTANEOUS
     Route: 058
     Dates: start: 20061101

REACTIONS (1)
  - DIARRHOEA [None]
